FAERS Safety Report 9116253 (Version 4)
Quarter: 2013Q1

REPORT INFORMATION
  Report Type: Report from Study
  Country: US (occurrence: US)
  Receive Date: 20130225
  Receipt Date: 20130312
  Transmission Date: 20140127
  Serious: Yes (Life-Threatening, Hospitalization)
  Sender: FDA-Public Use
  Company Number: US-JNJFOC-20130212797

PATIENT
  Age: 8 Year
  Sex: Male
  Weight: 31.8 kg

DRUGS (16)
  1. REMICADE [Suspect]
     Indication: INFLAMMATORY BOWEL DISEASE
     Route: 042
     Dates: start: 20090101
  2. DIAZEPAM [Concomitant]
     Route: 065
  3. OXCARBAZEPINE [Concomitant]
     Route: 065
  4. KEPPRA [Concomitant]
     Route: 065
  5. NEXIUM [Concomitant]
     Route: 065
  6. ALLEGRA [Concomitant]
     Route: 065
  7. ZOFRAN [Concomitant]
     Route: 065
  8. CLONIDINE [Concomitant]
     Route: 065
  9. PREDNISONE [Concomitant]
     Route: 065
  10. 6-MERCAPTOPURINE [Concomitant]
     Route: 065
  11. ALBUTEROL [Concomitant]
     Route: 065
  12. BUDESONIDE [Concomitant]
     Route: 065
  13. CETIRIZINE [Concomitant]
     Route: 065
  14. PREVACID [Concomitant]
     Route: 065
  15. LIDEX [Concomitant]
     Route: 065
  16. NYSTATIN-TRIAMCINOLONE [Concomitant]
     Route: 065

REACTIONS (2)
  - Heart rate abnormal [Recovered/Resolved]
  - Pneumonia influenzal [Recovered/Resolved]
